FAERS Safety Report 25268571 (Version 1)
Quarter: 2025Q2

REPORT INFORMATION
  Report Type: Spontaneous
  Country: US (occurrence: None)
  Receive Date: 20250502
  Receipt Date: 20250502
  Transmission Date: 20250717
  Serious: Yes (Disabling)
  Sender: FDA-CTU
  Company Number: None

PATIENT
  Age: 63 Year
  Sex: Female
  Weight: 72.9 kg

DRUGS (3)
  1. RALOXIFENE [Suspect]
     Active Substance: RALOXIFENE
     Indication: Osteoporosis
     Dosage: 1 TABLET DAILY ORAL
     Route: 048
     Dates: start: 20250101, end: 20250424
  2. GABAPENTIN [Concomitant]
     Active Substance: GABAPENTIN
  3. PROMETRIUM [Concomitant]
     Active Substance: PROGESTERONE

REACTIONS (4)
  - Seizure like phenomena [None]
  - Delirium [None]
  - Cardiac failure [None]
  - Hypocalcaemia [None]

NARRATIVE: CASE EVENT DATE: 20250211
